FAERS Safety Report 8232657-1 (Version None)
Quarter: 2012Q1

REPORT INFORMATION
  Report Type: 
  Country: None (occurrence: None)
  Receive Date: 20120323
  Receipt Date: 20120321
  Transmission Date: 20120608
  Serious: Yes (Disabling, Other)
  Sender: FDA-Public Use
  Company Number: US-PFIZER INC-2012074664

PATIENT
  Sex: Female

DRUGS (10)
  1. WARFARIN SODIUM [Concomitant]
     Indication: ANTICOAGULANT THERAPY
     Dosage: 5 MG, UNK
  2. ALDACTONE [Concomitant]
     Indication: HYPOKALAEMIA
     Dosage: 25 MG, UNK
  3. ZOCOR [Concomitant]
     Indication: BLOOD CHOLESTEROL INCREASED
     Dosage: 40 MG, UNK
  4. XANAX [Suspect]
     Dosage: UNK 3 X DAY
     Dates: end: 20110901
  5. SYNTHROID [Concomitant]
     Indication: THYROID DISORDER
     Dosage: 75 UG, UNK
  6. TOPROL-XL [Concomitant]
     Indication: BLOOD PRESSURE ABNORMAL
     Dosage: 100 MG, UNK
  7. DOXEPIN [Concomitant]
     Indication: ANXIETY
     Dosage: 2 CAPSULES DAILY
  8. ZOLOFT [Concomitant]
     Indication: ANXIETY
     Dosage: 100 MG, UNK
  9. XANAX [Suspect]
     Indication: ANXIETY
     Dosage: UNK1 MG IN THE MORNING, 1 MG IN THE EVENING AND TWO DOSES OF 1MG IN THE NIGHT
     Dates: start: 19870101
  10. DIOVAN [Concomitant]
     Indication: BLOOD PRESSURE ABNORMAL
     Dosage: 8 MG, UNK

REACTIONS (1)
  - SYSTEMIC LUPUS ERYTHEMATOSUS [None]
